FAERS Safety Report 21195253 (Version 1)
Quarter: 2022Q3

REPORT INFORMATION
  Report Type: Spontaneous
  Country: US (occurrence: None)
  Receive Date: 20220809
  Receipt Date: 20220809
  Transmission Date: 20221027
  Serious: No
  Sender: FDA-Public Use
  Company Number: None

PATIENT
  Age: 51 Year
  Sex: Female
  Weight: 85.09 kg

DRUGS (20)
  1. VOTRIENT [Suspect]
     Active Substance: PAZOPANIB HYDROCHLORIDE
     Indication: Malignant connective tissue neoplasm
     Dosage: FREQUENCY : DAILY;?
     Route: 048
     Dates: start: 202205
  2. VOTRIENT [Suspect]
     Active Substance: PAZOPANIB HYDROCHLORIDE
     Indication: Soft tissue sarcoma
  3. CEPHALEXIN [Concomitant]
     Active Substance: CEPHALEXIN
  4. COMPRO [Suspect]
     Active Substance: PROCHLORPERAZINE
  5. FLUTICASONE [Concomitant]
     Active Substance: FLUTICASONE
  6. PROPIONATE [Concomitant]
  7. DULOXETINE [Concomitant]
     Active Substance: DULOXETINE
  8. FENTANYL [Concomitant]
     Active Substance: FENTANYL
  9. LACTULOSE [Concomitant]
     Active Substance: LACTULOSE
  10. LEVOTHYROXINE [Concomitant]
     Active Substance: LEVOTHYROXINE
  11. LINZESS [Concomitant]
     Active Substance: LINACLOTIDE
  12. LOPERAMIDE [Concomitant]
     Active Substance: LOPERAMIDE
  13. CANNABIS SATIVA SUBSP. INDICA TOP [Concomitant]
     Active Substance: CANNABIS SATIVA SUBSP. INDICA TOP
  14. MIRALAX [Concomitant]
     Active Substance: POLYETHYLENE GLYCOL 3350
  15. NARCAN [Concomitant]
     Active Substance: NALOXONE HYDROCHLORIDE
  16. OXYCODONE [Concomitant]
     Active Substance: OXYCODONE
  17. PROCHLORPERAZINE [Concomitant]
     Active Substance: PROCHLORPERAZINE
  18. PROMETHAZINE [Concomitant]
     Active Substance: PROMETHAZINE HYDROCHLORIDE
  19. REMERON [Concomitant]
     Active Substance: MIRTAZAPINE
  20. TRAZODONE [Concomitant]
     Active Substance: TRAZODONE HYDROCHLORIDE

REACTIONS (1)
  - Urinary tract infection [None]
